FAERS Safety Report 5201144-7 (Version None)
Quarter: 2007Q1

REPORT INFORMATION
  Report Type: 
  Country: None (occurrence: None)
  Receive Date: 20070103
  Receipt Date: 20061220
  Transmission Date: 20070707
  Serious: Yes (Hospitalization)
  Sender: FDA-Public Use
  Company Number: DISGB-06-0727

PATIENT
  Age: 19 Year
  Sex: Female
  Weight: 53 kg

DRUGS (2)
  1. PROPOFOL [Suspect]
     Indication: ANAESTHESIA
     Dosage: INTRAVENOUS
     Route: 042
     Dates: start: 20061031
  2. MICROGYNON (EUGYNON) [Concomitant]

REACTIONS (1)
  - DYSKINESIA [None]
